FAERS Safety Report 8787371 (Version 1)
Quarter: 2012Q4

REPORT INFORMATION
  Report Type: Report from Study
  Country: US (occurrence: US)
  Receive Date: 20120914
  Receipt Date: 20120914
  Transmission Date: 20130627
  Serious: No
  Sender: FDA-Public Use
  Company Number: US-VERTEX PHARMACEUTICAL INC.-AE-2012-010940

PATIENT
  Sex: Female

DRUGS (6)
  1. INCIVEK [Suspect]
     Indication: HEPATITIS C
     Route: 048
     Dates: start: 2012, end: 201206
  2. RIBAPAK [Concomitant]
     Indication: HEPATITIS C
     Dates: start: 2012, end: 201206
  3. PEGASYS [Concomitant]
     Indication: HEPATITIS C
     Route: 058
     Dates: start: 2012, end: 201206
  4. CENTRUM SILVER [Concomitant]
  5. PAXIL [Concomitant]
  6. FLUTICASONE PROPIONATE [Concomitant]

REACTIONS (1)
  - Alopecia [Not Recovered/Not Resolved]
